FAERS Safety Report 8881056 (Version 2)
Quarter: 2013Q1

REPORT INFORMATION
  Report Type: Report from Study
  Country: JP (occurrence: JP)
  Receive Date: 20121101
  Receipt Date: 20130328
  Transmission Date: 20140127
  Serious: Yes (Hospitalization, Other)
  Sender: FDA-Public Use
  Company Number: JP-ABBOTT-12P-087-0919368-00

PATIENT
  Age: 70 None
  Sex: Female
  Weight: 45 kg

DRUGS (13)
  1. HUMIRA 40 MG/ 0.8 ML PRE-FILLED SYRINGE [Suspect]
     Indication: RHEUMATOID ARTHRITIS
     Route: 058
     Dates: start: 20120201, end: 20120317
  2. RHEUMATREX [Suspect]
     Indication: RHEUMATOID ARTHRITIS
     Dates: start: 20090722, end: 20120317
  3. FOLIC ACID [Concomitant]
     Indication: RHEUMATOID ARTHRITIS
     Route: 048
     Dates: start: 20090819, end: 20120317
  4. FOLIC ACID [Concomitant]
     Indication: PROPHYLAXIS
  5. FOLIC ACID [Concomitant]
     Indication: ADVERSE REACTION
  6. PREDNISOLONE [Concomitant]
     Indication: RHEUMATOID ARTHRITIS
     Route: 048
     Dates: start: 20120201, end: 20120319
  7. ALENDRONATE SODIUM HYDRATE [Concomitant]
     Indication: OSTEOPOROSIS
     Route: 048
     Dates: start: 20070412
  8. ALENDRONATE SODIUM HYDRATE [Concomitant]
     Indication: OSTEOPOROSIS PROPHYLAXIS
  9. ALFACALCIDOL [Concomitant]
     Indication: OSTEOPOROSIS PROPHYLAXIS
     Route: 048
     Dates: start: 20070417
  10. FAMOTIDINE [Concomitant]
     Indication: PROPHYLAXIS AGAINST GASTROINTESTINAL ULCER
     Dates: start: 20080918, end: 20120413
  11. ISONIAZID [Concomitant]
     Indication: ANTIBIOTIC PROPHYLAXIS
     Route: 048
     Dates: start: 20120106
  12. PYRIDOXAL PHOSPHATE HYDRATE [Concomitant]
     Indication: ANTIBIOTIC PROPHYLAXIS
     Route: 048
     Dates: start: 20120106
  13. MELOXICAM [Concomitant]
     Indication: RHEUMATOID ARTHRITIS
     Route: 048
     Dates: start: 20110331, end: 20120319

REACTIONS (4)
  - Interstitial lung disease [Recovering/Resolving]
  - Pneumocystis jirovecii pneumonia [Unknown]
  - Blood beta-D-glucan increased [Unknown]
  - Arthralgia [Unknown]
